FAERS Safety Report 4830701-2 (Version None)
Quarter: 2005Q4

REPORT INFORMATION
  Report Type: 
  Country: None (occurrence: None)
  Receive Date: 20051115
  Receipt Date: 20051031
  Transmission Date: 20060501
  Serious: Yes (Other)
  Sender: FDA-Public Use
  Company Number: 6018471F

PATIENT
  Sex: Male

DRUGS (1)
  1. NIASPAN [Suspect]
     Dosage: 500 MG QD PO
     Route: 048
     Dates: start: 20051029

REACTIONS (7)
  - BURNING SENSATION [None]
  - ERYTHEMA [None]
  - FALL [None]
  - HOT FLUSH [None]
  - LOSS OF CONSCIOUSNESS [None]
  - SWELLING [None]
  - VISUAL DISTURBANCE [None]
